FAERS Safety Report 4676736-4 (Version None)
Quarter: 2005Q2

REPORT INFORMATION
  Report Type: 
  Country: None (occurrence: None)
  Receive Date: 20050527
  Receipt Date: 20050516
  Transmission Date: 20051028
  Serious: Yes (Other)
  Sender: FDA-Public Use
  Company Number: 2005062239

PATIENT
  Age: 56 Year
  Sex: Female
  Weight: 81.6475 kg

DRUGS (8)
  1. TIKOSYN [Suspect]
     Indication: ATRIAL FIBRILLATION
     Dosage: 1000 MCG (500 MCG, 2 IN 1 D), ORAL
     Route: 048
     Dates: start: 20050216
  2. LOPRESSOR [Concomitant]
  3. PRILOSEC [Concomitant]
  4. ACETYLSALICYLIC ACID (ACETYLSALICYCLIC ACID) [Concomitant]
  5. PLAVIX [Concomitant]
  6. WARFARIN SODIUM [Concomitant]
  7. LIPITOR [Concomitant]
  8. MAGNESIUM OXIDE (MAGNESIUM OXIDE) [Concomitant]

REACTIONS (7)
  - ATRIAL FIBRILLATION [None]
  - BLOOD PRESSURE SYSTOLIC DECREASED [None]
  - CARDIAC NEOPLASM UNSPECIFIED [None]
  - CONDITION AGGRAVATED [None]
  - PHARMACEUTICAL PRODUCT COMPLAINT [None]
  - THERAPY NON-RESPONDER [None]
  - WHEEZING [None]
